FAERS Safety Report 7001663-7 (Version None)
Quarter: 2010Q3

REPORT INFORMATION
  Report Type: 
  Country: None (occurrence: None)
  Receive Date: 20100920
  Receipt Date: 20100910
  Transmission Date: 20110219
  Serious: Yes (Other)
  Sender: FDA-Public Use
  Company Number: JP-PFIZER INC-2010114409

PATIENT

DRUGS (1)
  1. NORVASC [Suspect]
     Route: 048

REACTIONS (2)
  - BILIARY COLIC [None]
  - BILIARY DYSKINESIA [None]
